FAERS Safety Report 17224199 (Version 2)
Quarter: 2020Q2

REPORT INFORMATION
  Report Type: Spontaneous
  Country: JP (occurrence: JP)
  Receive Date: 20200102
  Receipt Date: 20200419
  Transmission Date: 20200713
  Serious: Yes (Hospitalization)
  Sender: FDA-Public Use
  Company Number: JP-ROCHE-2510182

PATIENT
  Age: 82 Year
  Sex: Male

DRUGS (8)
  1. XOFLUZA [Suspect]
     Active Substance: BALOXAVIR MARBOXIL
     Indication: TYPE 2 DIABETES MELLITUS
  2. HUMALOG [Concomitant]
     Active Substance: INSULIN LISPRO
     Indication: TYPE 2 DIABETES MELLITUS
     Dosage: 8 IU/DAY SC TYPE 2 DIABETES MELLITUS NI TO NI DOSE NOT CHANGED
     Route: 065
  3. ENALAPRIL [Concomitant]
     Active Substance: ENALAPRIL
     Indication: ANGINA PECTORIS
     Dosage: 2.5 MG/DAY PO ANGINA PECTORIS NI TO NI DOSE NOT CHANGED
     Route: 065
  4. EFIENT [Concomitant]
     Active Substance: PRASUGREL HYDROCHLORIDE
     Indication: ANGINA PECTORIS
     Dosage: 3.75 MG/DAY PO  NI TO NI DOSE NOT CHANGED
     Route: 065
  5. BISOPROLOL FUMARATE. [Concomitant]
     Active Substance: BISOPROLOL FUMARATE
     Indication: ANGINA PECTORIS
     Dosage: 5.0 MG/DAY PO ANGINA PECTORIS NI TO NI DOSE NOT CHANGED
     Route: 065
  6. XOFLUZA [Suspect]
     Active Substance: BALOXAVIR MARBOXIL
     Indication: INFLUENZA
     Route: 048
     Dates: start: 20191220, end: 20191222
  7. BAYASPIRINA [Concomitant]
     Active Substance: ASPIRIN
     Indication: ANGINA PECTORIS
     Dosage: 100 MG/DAY PO NI TO NI DOSE NOT CHANGED
     Route: 065
  8. XOFLUZA [Suspect]
     Active Substance: BALOXAVIR MARBOXIL
     Indication: ANGINA PECTORIS

REACTIONS (1)
  - Melaena [Recovering/Resolving]

NARRATIVE: CASE EVENT DATE: 20191220
